FAERS Safety Report 7203425-4 (Version None)
Quarter: 2010Q4

REPORT INFORMATION
  Report Type: 
  Country: None (occurrence: None)
  Receive Date: 20101228
  Receipt Date: 20101228
  Transmission Date: 20110411
  Serious: Yes (Life-Threatening, Hospitalization)
  Sender: FDA-Public Use
  Company Number: None

PATIENT
  Age: 26 Year
  Sex: Female
  Weight: 63.5036 kg

DRUGS (1)
  1. NUVARING [Suspect]
     Indication: CONTRACEPTION
     Dosage: 1 RING MONTHLY INTRA-UTERINE
     Route: 015
     Dates: start: 20101001, end: 20101214

REACTIONS (3)
  - BACK PAIN [None]
  - PULMONARY EMBOLISM [None]
  - PULMONARY INFARCTION [None]
